FAERS Safety Report 17094532 (Version 2)
Quarter: 2020Q2

REPORT INFORMATION
  Report Type: Report from Study
  Country: None (occurrence: BR)
  Receive Date: 20191129
  Receipt Date: 20200504
  Transmission Date: 20200713
  Serious: Yes (Other)
  Sender: FDA-Public Use
  Company Number: BR-ABBVIE-19K-020-3171740-00

PATIENT
  Age: 54 Year
  Sex: Female
  Weight: 54.3 kg

DRUGS (3)
  1. HUMIRA [Suspect]
     Active Substance: ADALIMUMAB
     Indication: COLITIS ULCERATIVE
     Dosage: AT THE FIRST WEEK
     Route: 058
  2. HUMIRA [Suspect]
     Active Substance: ADALIMUMAB
     Route: 058
  3. HUMIRA [Suspect]
     Active Substance: ADALIMUMAB
     Route: 058

REACTIONS (14)
  - Intestinal resection [Unknown]
  - Insomnia [Unknown]
  - Stoma closure [Unknown]
  - Weight decreased [Unknown]
  - Stoma site inflammation [Recovered/Resolved]
  - Arthralgia [Unknown]
  - Stoma complication [Unknown]
  - Surgery [Unknown]
  - Ulcer [Unknown]
  - Fistula [Unknown]
  - Ileostomy closure [Unknown]
  - Inflammation [Recovered/Resolved]
  - Infection [Unknown]
  - Diarrhoea [Recovering/Resolving]

NARRATIVE: CASE EVENT DATE: 2016
